FAERS Safety Report 24124359 (Version 3)
Quarter: 2024Q3

REPORT INFORMATION
  Report Type: Spontaneous
  Country: CA (occurrence: CA)
  Receive Date: 20240723
  Receipt Date: 20240814
  Transmission Date: 20241016
  Serious: Yes (Death, Hospitalization, Other)
  Sender: UNITED THERAPEUTICS
  Company Number: CA-UNITED THERAPEUTICS-UNT-2024-021323

PATIENT
  Age: 61 Year
  Sex: Male

DRUGS (2)
  1. REMODULIN [Suspect]
     Active Substance: TREPROSTINIL
     Indication: Pulmonary arterial hypertension
     Dosage: 0.029 ?G/KG (APPROX.), CONTINUING
  2. REMODULIN [Suspect]
     Active Substance: TREPROSTINIL
     Dosage: UNK, CONTINUING

REACTIONS (6)
  - Death [Fatal]
  - Pulmonary hypertension [Unknown]
  - Right ventricular failure [Unknown]
  - Small intestinal obstruction [Unknown]
  - Device malfunction [Unknown]
  - Device breakage [Unknown]

NARRATIVE: CASE EVENT DATE: 20240811
